FAERS Safety Report 4649490-X (Version None)
Quarter: 2005Q2

REPORT INFORMATION
  Report Type: 
  Country: None (occurrence: None)
  Receive Date: 20050331
  Receipt Date: 20050104
  Transmission Date: 20051028
  Serious: No
  Sender: FDA-Public Use
  Company Number: 05P-163-0285304-00

PATIENT
  Age: 58 Year
  Sex: Female
  Weight: 100 kg

DRUGS (9)
  1. HUMIRA [Suspect]
     Indication: RHEUMATOID ARTHRITIS
     Dosage: 40 MG, 1 IN 2 WK, SUBCUTANEOUS
     Route: 058
     Dates: start: 20041001
  2. METHOTREXATE [Concomitant]
  3. CALCIUM GLUCONATE [Concomitant]
  4. PREDNISONE TAB [Concomitant]
  5. MULTI-VITAMINS [Concomitant]
  6. GARLIC PILL [Concomitant]
  7. ERGOCALCIFEROL [Concomitant]
  8. RANITIDINE HYDROCHLORIDE [Concomitant]
  9. TOCOPHEROL CONCENTRATE CAP [Concomitant]

REACTIONS (1)
  - RHEUMATOID ARTHRITIS [None]
